FAERS Safety Report 11440087 (Version 2)
Quarter: 2015Q4

REPORT INFORMATION
  Report Type: Report from Study
  Country: US (occurrence: US)
  Receive Date: 20150901
  Receipt Date: 20151009
  Transmission Date: 20160304
  Serious: Yes (Hospitalization)
  Sender: FDA-Public Use
  Company Number: PHEH2015US016542

PATIENT
  Sex: Male

DRUGS (3)
  1. EXTAVIA [Suspect]
     Active Substance: INTERFERON BETA-1B
     Indication: MULTIPLE SCLEROSIS
     Dosage: WEEKS 1-2 : 0.0625 MG (0.25 ML) QOD
     Route: 058
     Dates: start: 20150916
  2. EXTAVIA [Suspect]
     Active Substance: INTERFERON BETA-1B
     Dosage: 0.25 MG, UNK
     Route: 058
  3. EXTAVIA [Suspect]
     Active Substance: INTERFERON BETA-1B
     Dosage: WEEKS 1-2 : 0.0625 MG (0.25 ML) QOD
     Route: 058

REACTIONS (3)
  - Weight decreased [Unknown]
  - Dizziness [Unknown]
  - Incorrect dose administered [Unknown]
